FAERS Safety Report 5385944-9 (Version None)
Quarter: 2007Q3

REPORT INFORMATION
  Report Type: 
  Country: None (occurrence: None)
  Receive Date: 20070710
  Receipt Date: 20070629
  Transmission Date: 20080115
  Serious: Yes (Hospitalization, Other)
  Sender: FDA-Public Use
  Company Number: 2007-02249

PATIENT
  Age: 65 Year
  Sex: Female
  Weight: 41 kg

DRUGS (18)
  1. VELCADE [Suspect]
     Indication: MULTIPLE MYELOMA
     Dosage: 1.60 MG, INTRAVENOUS
     Route: 042
     Dates: start: 20070122, end: 20070226
  2. NEUPOGEN [Concomitant]
  3. MAXIPIME [Concomitant]
  4. CONIEL (BENIDIPINE HYDROCHLORIDE) [Concomitant]
  5. ISOSORBIDE DINITRATE [Concomitant]
  6. DIFLUCAN [Concomitant]
  7. SULFAMETHOXAZOLE + TRIMETHOPRIM [Concomitant]
  8. BLOPRESS (CANDESARTAN CILEXETIL) [Concomitant]
  9. FAMOTIDINE [Concomitant]
  10. LEVOFLOXACIN [Concomitant]
  11. METHYCOBAL (MECOBALAMIN) [Concomitant]
  12. MAGNESIUM OXIDE (MAGNESIUM OXIDE) [Concomitant]
  13. ALENDRONATE SODIUM [Concomitant]
  14. ROHYPNOL (FLUNITRAZEPAM) [Concomitant]
  15. PURSENNID (SENNA LEAF) [Concomitant]
  16. LAXOBERON (SODIUM PICOSULFATE) [Concomitant]
  17. ENTERONON R (STREPTOCOCCUS FAECALIS, LACTOBACILLUS LACTIS, LACTOBACILL [Concomitant]
  18. ASPARA K (ASPARTATE POTASSIUM) [Concomitant]

REACTIONS (15)
  - ANAEMIA [None]
  - CHEST DISCOMFORT [None]
  - CHEST PAIN [None]
  - CONDITION AGGRAVATED [None]
  - CONSTIPATION [None]
  - DIARRHOEA [None]
  - DISEASE RECURRENCE [None]
  - ELECTROCARDIOGRAM QT PROLONGED [None]
  - ELECTROCARDIOGRAM ST SEGMENT ELEVATION [None]
  - ELECTROCARDIOGRAM T WAVE PEAKED [None]
  - MALAISE [None]
  - NEUTROPENIA [None]
  - PYREXIA [None]
  - RASH [None]
  - THROMBOCYTOPENIA [None]
